FAERS Safety Report 4845717-X (Version None)
Quarter: 2005Q4

REPORT INFORMATION
  Report Type: 
  Country: None (occurrence: None)
  Receive Date: 20051201
  Receipt Date: 20051118
  Transmission Date: 20060501
  Serious: Yes (Hospitalization)
  Sender: FDA-Public Use
  Company Number: L05-FRA-05323-01

PATIENT
  Age: 85 Year
  Sex: Male

DRUGS (8)
  1. CARBAMAZEPINE [Suspect]
     Indication: BIPOLAR I DISORDER
  2. VITAMIN K [Suspect]
  3. CLARITHROMYCIN [Suspect]
     Indication: BRONCHITIS
  4. FLUOXETINE [Concomitant]
  5. ACE INHIBITOR [Concomitant]
  6. DIURETIC [Concomitant]
  7. STATIN [Concomitant]
  8. NITRATE DERIVATIVE [Concomitant]

REACTIONS (7)
  - ASTERIXIS [None]
  - CHOLESTASIS [None]
  - CONFUSIONAL STATE [None]
  - CYTOLYTIC HEPATITIS [None]
  - ENCEPHALOPATHY [None]
  - HEPATOTOXICITY [None]
  - MULTIPLE DRUG OVERDOSE [None]
